FAERS Safety Report 6545316-8 (Version None)
Quarter: 2010Q1

REPORT INFORMATION
  Report Type: 
  Country: None (occurrence: None)
  Receive Date: 20100121
  Receipt Date: 20100113
  Transmission Date: 20100710
  Serious: Yes (Death)
  Sender: FDA-Public Use
  Company Number: US-MERCK-1001USA01513

PATIENT
  Age: 40 Year
  Sex: Female

DRUGS (6)
  1. TIAMATE [Suspect]
     Route: 048
  2. ACETAMINOPHEN AND HYDROCODONE BITARTRATE [Suspect]
     Route: 065
  3. WARFARIN [Suspect]
     Route: 065
  4. METOCLOPRAMIDE [Suspect]
     Route: 065
  5. MIRTAZAPINE [Suspect]
     Route: 065
  6. TEMAZEPAM [Suspect]
     Route: 065

REACTIONS (1)
  - ADVERSE EVENT [None]
